FAERS Safety Report 4578466-6 (Version None)
Quarter: 2005Q1

REPORT INFORMATION
  Report Type: 
  Country: None (occurrence: None)
  Receive Date: 20050211
  Receipt Date: 20050207
  Transmission Date: 20050727
  Serious: Yes (Other)
  Sender: FDA-Public Use
  Company Number: PHEH2005US01825

PATIENT
  Sex: Female

DRUGS (2)
  1. LAMISIL [Suspect]
     Indication: NAIL TINEA
     Dosage: 250 MG, QD
     Route: 048
  2. ANTIHYPERTENSIVES [Concomitant]

REACTIONS (3)
  - ABDOMINAL PAIN UPPER [None]
  - GASTRIC PERFORATION [None]
  - NAUSEA [None]
